FAERS Safety Report 12938928 (Version 1)
Quarter: 2016Q4

REPORT INFORMATION
  Report Type: Spontaneous
  Country: EG (occurrence: US)
  Receive Date: 20161113
  Receipt Date: 20161113
  Transmission Date: 20170207
  Serious: Yes (Other)
  Sender: FDA-Public Use
  Company Number: None

PATIENT
  Age: 23 Year
  Sex: Male
  Weight: 93 kg

DRUGS (1)
  1. FEXOFENADINE\PSEUDOEPHEDRINE, 60\120MG [Suspect]
     Active Substance: FEXOFENADINE\PSEUDOEPHEDRINE
     Indication: PRODUCT USED FOR UNKNOWN INDICATION
     Route: 048
     Dates: start: 20161112, end: 20161113

REACTIONS (1)
  - Blood glucose false positive [None]

NARRATIVE: CASE EVENT DATE: 20161112
